FAERS Safety Report 8592876-1 (Version None)
Quarter: 2012Q3

REPORT INFORMATION
  Report Type: 
  Country: None (occurrence: None)
  Receive Date: 20120814
  Receipt Date: 20120806
  Transmission Date: 20120928
  Serious: Yes (Other)
  Sender: FDA-Public Use
  Company Number: GB-TEVA-352448ISR

PATIENT
  Age: 49 Year
  Sex: Male

DRUGS (5)
  1. SIMVASTATIN [Concomitant]
     Dosage: 40 MILLIGRAM DAILY; AT NIGHT. ONGOING FOR SEVERAL MONTHS.
     Route: 048
  2. CLONAZEPAM [Concomitant]
     Dosage: 1 MILLIGRAM DAILY; ONGOING FOR SEVERAL MONTHS
     Route: 048
  3. OLANZAPINE [Suspect]
     Indication: AFFECTIVE DISORDER
     Route: 048
     Dates: start: 20120515, end: 20120525
  4. OMEPRAZOLE [Concomitant]
     Dosage: 40 MILLIGRAM DAILY; ONGOING FOR SEVERAL MONTHS
     Route: 048
  5. AGOMELATINE [Concomitant]
     Dosage: 25 MILLIGRAM DAILY; AT NIGHT. ONGOING FOR SEVERAL MONTHS
     Route: 048

REACTIONS (3)
  - RECTAL HAEMORRHAGE [None]
  - EPISTAXIS [None]
  - GINGIVAL BLEEDING [None]
